FAERS Safety Report 9565221 (Version 4)
Quarter: 2013Q4

REPORT INFORMATION
  Report Type: Spontaneous
  Country: SE (occurrence: SE)
  Receive Date: 20130930
  Receipt Date: 20131205
  Transmission Date: 20140711
  Serious: Yes (Other)
  Sender: FDA-Public Use
  Company Number: SE-BAXTER-2013BAX029605

PATIENT
  Age: 41 Year
  Sex: Male

DRUGS (3)
  1. KIOVIG 100 MG/ML INFUSIONSV?TSKA, L?SNING [Suspect]
     Indication: HYPOGAMMAGLOBULINAEMIA
     Route: 042
     Dates: start: 20130619, end: 20130619
  2. DOXYFERM [Concomitant]
     Indication: RESPIRATORY TRACT INFECTION
     Route: 065
  3. OCTAGAM [Concomitant]
     Indication: IMMUNODEFICIENCY COMMON VARIABLE
     Route: 065
     Dates: start: 20120806

REACTIONS (5)
  - Respiratory tract infection [Recovered/Resolved]
  - Hypersensitivity [Recovered/Resolved]
  - Flushing [Recovered/Resolved]
  - Nausea [Recovered/Resolved]
  - Vomiting [Recovered/Resolved]
